FAERS Safety Report 14111170 (Version 1)
Quarter: 2017Q4

REPORT INFORMATION
  Report Type: Spontaneous
  Country: IT (occurrence: IT)
  Receive Date: 20171020
  Receipt Date: 20171020
  Transmission Date: 20180321
  Serious: Yes (Hospitalization)
  Sender: FDA-Public Use
  Company Number: IT-GLAXOSMITHKLINE-IT2017GSK160107

PATIENT
  Age: 65 Year
  Sex: Male

DRUGS (7)
  1. CLENIL [Concomitant]
     Active Substance: BECLOMETHASONE DIPROPIONATE
     Route: 055
  2. SYMBICORT [Suspect]
     Active Substance: BUDESONIDE\FORMOTEROL FUMARATE DIHYDRATE
     Indication: BRONCHOPULMONARY DISEASE
     Dosage: 1 UNK, QD
     Route: 055
     Dates: start: 20170101, end: 20170624
  3. BRONCOVALEAS [Suspect]
     Active Substance: ALBUTEROL
     Indication: BRONCHOPULMONARY DISEASE
     Dosage: 1 UNK, QD
     Route: 048
     Dates: start: 20170101, end: 20170624
  4. BRONCOVALEAS [Suspect]
     Active Substance: ALBUTEROL
     Indication: ASTHMA
  5. VENTOLIN [Suspect]
     Active Substance: ALBUTEROL SULFATE
     Indication: BRONCHOPULMONARY DISEASE
     Dosage: 1 UNK, QD
     Route: 055
     Dates: start: 20170101, end: 20170624
  6. VENTOLIN [Suspect]
     Active Substance: ALBUTEROL SULFATE
     Indication: ASTHMA
  7. SYMBICORT [Suspect]
     Active Substance: BUDESONIDE\FORMOTEROL FUMARATE DIHYDRATE
     Indication: ASTHMA

REACTIONS (4)
  - Sinus tachycardia [Unknown]
  - Overdose [Unknown]
  - Dyspnoea [Unknown]
  - Abdominal pain [Unknown]

NARRATIVE: CASE EVENT DATE: 20170624
